FAERS Safety Report 12500704 (Version 6)
Quarter: 2018Q3

REPORT INFORMATION
  Report Type: Report from Study
  Country: US (occurrence: US)
  Receive Date: 20160627
  Receipt Date: 20180814
  Transmission Date: 20181010
  Serious: Yes (Hospitalization)
  Sender: FDA-Public Use
  Company Number: US-ACTELION-A-US2016-138267

PATIENT
  Age: 33 Year
  Sex: Female
  Weight: 52.61 kg

DRUGS (7)
  1. LETAIRIS [Suspect]
     Active Substance: AMBRISENTAN
     Dosage: 5 UNK, UNK
     Route: 065
     Dates: start: 20080806
  2. ADEMPAS [Concomitant]
     Active Substance: RIOCIGUAT
  3. VELETRI [Suspect]
     Active Substance: EPOPROSTENOL
     Indication: PULMONARY HYPERTENSION
     Dosage: 63 NG/KG, PER MIN
     Route: 042
     Dates: start: 20100901
  4. VELETRI [Suspect]
     Active Substance: EPOPROSTENOL
     Dosage: UNK
     Route: 042
  5. LETAIRIS [Suspect]
     Active Substance: AMBRISENTAN
     Indication: PRODUCT USED FOR UNKNOWN INDICATION
     Dosage: 10 MG, QD
     Route: 065
     Dates: start: 20160324
  6. SILDENAFIL. [Concomitant]
     Active Substance: SILDENAFIL
  7. WARFARIN [Concomitant]
     Active Substance: WARFARIN

REACTIONS (16)
  - Catheter site pain [Unknown]
  - Underdose [Unknown]
  - Sepsis [Unknown]
  - Catheter site swelling [Unknown]
  - Diarrhoea [Not Recovered/Not Resolved]
  - Dyspnoea [Not Recovered/Not Resolved]
  - Fatigue [Unknown]
  - Device related infection [Unknown]
  - Pain in jaw [Not Recovered/Not Resolved]
  - Abdominal pain [Unknown]
  - Internal haemorrhage [Unknown]
  - Adverse event [Unknown]
  - Flushing [Not Recovered/Not Resolved]
  - Headache [Unknown]
  - Pneumonia [Unknown]
  - Thrombosis in device [Unknown]
